FAERS Safety Report 6505505-5 (Version None)
Quarter: 2009Q4

REPORT INFORMATION
  Report Type: 
  Country: None (occurrence: None)
  Receive Date: 20091218
  Receipt Date: 20091211
  Transmission Date: 20100525
  Serious: Yes (Other)
  Sender: FDA-Public Use
  Company Number: SG-PFIZER INC-2009310023

PATIENT
  Age: 84 Year
  Sex: Male

DRUGS (1)
  1. PHENYTOIN AND PHENYTOIN SODIUM [Suspect]
     Indication: CONVULSION
     Dosage: 125 MG, 1X/DAY
     Route: 048
     Dates: start: 20090420, end: 20090503

REACTIONS (1)
  - TRANSAMINASES INCREASED [None]
